FAERS Safety Report 4720500-4 (Version None)
Quarter: 2005Q3

REPORT INFORMATION
  Report Type: 
  Country: None (occurrence: None)
  Receive Date: 20050721
  Receipt Date: 20050127
  Transmission Date: 20060218
  Serious: No
  Sender: FDA-Public Use
  Company Number: US-BRISTOL-MYERS SQUIBB COMPANY-12841169

PATIENT
  Age: 61 Year
  Sex: Female
  Weight: 86 kg

DRUGS (11)
  1. GLUCOVANCE [Suspect]
     Indication: DIABETES MELLITUS
     Dosage: DOSAGE FORM = 2.5 MG/500 MG
     Route: 048
     Dates: start: 20031201
  2. PREMARIN [Concomitant]
  3. CELEBREX [Concomitant]
  4. AMITRIPTYLINE HCL [Concomitant]
  5. ALLEGRA [Concomitant]
  6. NORVASC [Concomitant]
  7. DEMADEX [Concomitant]
  8. LIBRIUM [Concomitant]
  9. COZAAR [Concomitant]
  10. LOPID [Concomitant]
  11. DICYCLOMINE [Concomitant]

REACTIONS (1)
  - THROAT TIGHTNESS [None]
